FAERS Safety Report 4277962-9 (Version None)
Quarter: 2004Q1

REPORT INFORMATION
  Report Type: 
  Country: None (occurrence: None)
  Receive Date: 20040120
  Receipt Date: 20040108
  Transmission Date: 20041129
  Serious: Yes (Death)
  Sender: FDA-Public Use
  Company Number: US-JNJFOC-20040101746

PATIENT
  Age: 65 Year
  Sex: Male

DRUGS (1)
  1. REOPRO [Suspect]
     Indication: CATHETERISATION CARDIAC
     Dates: start: 20030215, end: 20031215

REACTIONS (2)
  - PLATELET COUNT DECREASED [None]
  - PULMONARY HAEMORRHAGE [None]
